FAERS Safety Report 6687541-1 (Version None)
Quarter: 2010Q2

REPORT INFORMATION
  Report Type: 
  Country: None (occurrence: None)
  Receive Date: 20100416
  Receipt Date: 20100416
  Transmission Date: 20101027
  Serious: No
  Sender: FDA-Public Use
  Company Number: None

PATIENT
  Age: 54 Year
  Sex: Female
  Weight: 92.9874 kg

DRUGS (1)
  1. CIPROFLOXACIN [Suspect]
     Indication: CAMPYLOBACTER INFECTION
     Dosage: 500MG 2X DAY PO
     Route: 048
     Dates: start: 20100329, end: 20100407

REACTIONS (5)
  - ARTHRALGIA [None]
  - DECREASED ACTIVITY [None]
  - IMPAIRED WORK ABILITY [None]
  - IRRITABILITY [None]
  - JOINT SWELLING [None]
